FAERS Safety Report 5731494-7 (Version None)
Quarter: 2008Q2

REPORT INFORMATION
  Report Type: 
  Country: None (occurrence: None)
  Receive Date: 20080508
  Receipt Date: 20080502
  Transmission Date: 20081010
  Serious: Yes (Other)
  Sender: FDA-Public Use
  Company Number: PHEH2008US04286

PATIENT
  Age: 80 Year
  Sex: Male

DRUGS (1)
  1. TEKTURNA [Suspect]
     Dosage: 150 MG, QHS
     Dates: start: 20070717

REACTIONS (3)
  - POLLAKIURIA [None]
  - PROSTATOMEGALY [None]
  - SLEEP DISORDER [None]
